FAERS Safety Report 19606765 (Version 2)
Quarter: 2021Q3

REPORT INFORMATION
  Report Type: Spontaneous
  Country: US (occurrence: US)
  Receive Date: 20210725
  Receipt Date: 20210802
  Transmission Date: 20211014
  Serious: Yes (Other)
  Sender: FDA-Public Use
  Company Number: US-AMGEN-USASP2021111355

PATIENT
  Age: 40 Year
  Sex: Male

DRUGS (2)
  1. VENTOLIN HFA [Concomitant]
     Active Substance: ALBUTEROL SULFATE
     Dosage: 2 PUFFS BY MOUTH PRIOR TO EXERCISE AND EVERY 4 HOURS AS NEEDED
     Dates: start: 20150807
  2. AVSOLA [Suspect]
     Active Substance: INFLIXIMAB-AXXQ
     Indication: COLITIS ULCERATIVE
     Dosage: 400 MILLIGRAM, Q6WK
     Route: 042
     Dates: start: 20210427, end: 20210712

REACTIONS (1)
  - Infusion related reaction [Recovering/Resolving]

NARRATIVE: CASE EVENT DATE: 20210615
